FAERS Safety Report 8441412 (Version 4)
Quarter: 2012Q4

REPORT INFORMATION
  Report Type: 
  Country: US (occurrence: US)
  Receive Date: 20120305
  Receipt Date: 20120920
  Transmission Date: 20130627
  Serious: Yes (Hospitalization)
  Sender: FDA-Public Use
  Company Number: US-GLAXOSMITHKLINE-A0932436A

PATIENT
  Age: 76 Year
  Sex: Female

DRUGS (4)
  1. AVANDIA [Suspect]
     Indication: DIABETES MELLITUS
     Dosage: 4MG Per day
     Route: 048
  2. GLUCOPHAGE [Concomitant]
  3. LOPRESSOR [Concomitant]
  4. ZOCOR [Concomitant]

REACTIONS (2)
  - Angina unstable [Recovering/Resolving]
  - Coronary artery disease [Unknown]
